FAERS Safety Report 25346893 (Version 1)
Quarter: 2025Q2

REPORT INFORMATION
  Report Type: Spontaneous
  Country: US (occurrence: None)
  Receive Date: 20250521
  Receipt Date: 20250521
  Transmission Date: 20250716
  Serious: Yes (unspecified)
  Sender: FDA-CTU
  Company Number: None

PATIENT
  Age: 75 Year
  Sex: Male

DRUGS (1)
  1. HEPARIN SODIUM [Suspect]
     Active Substance: HEPARIN SODIUM
     Route: 042
     Dates: start: 20250314, end: 20250317

REACTIONS (3)
  - Heparin-induced thrombocytopenia [None]
  - Bone graft [None]
  - Graft thrombosis [None]

NARRATIVE: CASE EVENT DATE: 20250317
